FAERS Safety Report 20428526 (Version 1)
Quarter: 2022Q1

REPORT INFORMATION
  Report Type: Other
  Country: None (occurrence: GB)
  Receive Date: 20220204
  Receipt Date: 20220204
  Transmission Date: 20220424
  Serious: Yes (Hospitalization)
  Sender: FDA-Public Use
  Company Number: GB-Caplin Steriles Limited-2124604

PATIENT
  Age: 77 Year
  Sex: Female

DRUGS (1)
  1. TRANEXAMIC ACID [Suspect]
     Active Substance: TRANEXAMIC ACID
     Indication: Haematuria
     Route: 048

REACTIONS (2)
  - Bladder perforation [Recovered/Resolved]
  - Off label use [Unknown]
